FAERS Safety Report 15699516 (Version 1)
Quarter: 2018Q4

REPORT INFORMATION
  Report Type: Spontaneous
  Country: ES (occurrence: ES)
  Receive Date: 20181207
  Receipt Date: 20181207
  Transmission Date: 20190205
  Serious: Yes (Other)
  Sender: FDA-Public Use
  Company Number: PHHY2018ES176869

PATIENT

DRUGS (4)
  1. DOXORUBICIN [Suspect]
     Active Substance: DOXORUBICIN
     Indication: LEIOMYOSARCOMA
     Dosage: 60 MG/M2, 20-MINUTE INFUSION
     Route: 041
  2. DOXORUBICIN [Suspect]
     Active Substance: DOXORUBICIN
     Dosage: 75 MG/M2, 20-MINUTE INFUSION
     Route: 041
  3. DOXORUBICIN [Suspect]
     Active Substance: DOXORUBICIN
     Dosage: 65 MG/M2, 20-MINUTE INFUSION
     Route: 041
  4. NILOTINIB [Suspect]
     Active Substance: NILOTINIB
     Indication: LEIOMYOSARCOMA
     Dosage: 400 MG, Q12H
     Route: 048

REACTIONS (4)
  - Malignant neoplasm progression [Unknown]
  - Alopecia [Unknown]
  - Product use in unapproved indication [Unknown]
  - Leiomyosarcoma [Unknown]
